FAERS Safety Report 23011104 (Version 2)
Quarter: 2024Q1

REPORT INFORMATION
  Report Type: Spontaneous
  Country: JP (occurrence: None)
  Receive Date: 20230929
  Receipt Date: 20240320
  Transmission Date: 20240410
  Serious: Yes (Death, Life-Threatening)
  Sender: FDA-Public Use
  Company Number: 2023A093619

PATIENT
  Age: 18 Year
  Sex: Female

DRUGS (6)
  1. KOSELUGO [Suspect]
     Active Substance: SELUMETINIB
     Indication: Neurofibromatosis
     Route: 048
     Dates: start: 20230130, end: 20230428
  2. OXINORM [Concomitant]
     Indication: Pain
     Route: 048
     Dates: start: 20230130, end: 20230410
  3. SYMPROIC [Concomitant]
     Active Substance: NALDEMEDINE
     Indication: Constipation
     Route: 048
     Dates: start: 20230130
  4. OXYCODONE NX [Concomitant]
     Indication: Pain
     Route: 048
     Dates: start: 20230130
  5. OXYCODONE NX [Concomitant]
     Indication: Pain
     Route: 048
     Dates: start: 20230203, end: 20230327
  6. OXYCODONE HYDROCHLORIDE [Concomitant]
     Active Substance: OXYCODONE HYDROCHLORIDE
     Route: 048
     Dates: start: 20230327, end: 20230410

REACTIONS (1)
  - Neurofibrosarcoma [Fatal]

NARRATIVE: CASE EVENT DATE: 20230428
